FAERS Safety Report 24570489 (Version 2)
Quarter: 2024Q4

REPORT INFORMATION
  Report Type: Report from Study
  Country: IT (occurrence: IT)
  Receive Date: 20241031
  Receipt Date: 20241127
  Transmission Date: 20250114
  Serious: Yes (Life-Threatening, Hospitalization, Other)
  Sender: AEGERION
  Company Number: IT-AMRYT PHARMACEUTICALS DAC-AEGR007513

PATIENT

DRUGS (15)
  1. METRELEPTIN [Suspect]
     Active Substance: METRELEPTIN
     Indication: Partial lipodystrophy
     Dosage: 7.5 MILLIGRAM, QD
     Dates: start: 20140401
  2. METRELEPTIN [Suspect]
     Active Substance: METRELEPTIN
     Indication: Lipodystrophy acquired
  3. CLOPIDOGREL ALMUS [CLOPIDOGREL] [Concomitant]
     Indication: Product used for unknown indication
     Dosage: 75 MILLIGRAM, QD
     Dates: start: 20220901
  4. PANTOPRAZOLE [Concomitant]
     Active Substance: PANTOPRAZOLE
     Indication: Product used for unknown indication
     Dosage: 40 MILLIGRAM, QD
     Dates: start: 20220516
  5. METOPROLOL SUCCINATE [Concomitant]
     Active Substance: METOPROLOL SUCCINATE
     Indication: Product used for unknown indication
     Dosage: 150 MILLIGRAM, QD
     Dates: start: 20221001
  6. FENOFIBRATE AB [Concomitant]
     Indication: Product used for unknown indication
     Dosage: 200 MILLIGRAM, QD
     Dates: start: 20130101
  7. OMEGA-3 FATTY ACIDS [Concomitant]
     Active Substance: OMEGA-3 FATTY ACIDS
     Indication: Product used for unknown indication
     Dosage: 3000 MILLIGRAM, QD
     Dates: start: 20120101
  8. ROSUVASTATIN CALCIUM [Concomitant]
     Active Substance: ROSUVASTATIN CALCIUM
     Indication: Product used for unknown indication
     Dosage: 20 MILLIGRAM, QD
     Dates: start: 20130102
  9. EZETIMIBE ABZ [Concomitant]
     Indication: Product used for unknown indication
     Dosage: 10 MILLIGRAM, QD
     Dates: start: 20221001
  10. FOLIC ACID DIHYDRATE [Concomitant]
     Indication: Product used for unknown indication
     Dosage: 5 MILLIGRAM, QD
     Dates: start: 20130420
  11. INSULIN LISPRO [Concomitant]
     Active Substance: INSULIN LISPRO
     Indication: Product used for unknown indication
     Dosage: 90 UNITS, QD (3/DAY)
     Dates: start: 20130101
  12. INSULIN DEGLUDEC FLEXTOUCH [Concomitant]
     Indication: Product used for unknown indication
     Dosage: 40 UNITS, QD
     Dates: start: 20130101
  13. INSULIN DEGLUDEC FLEXTOUCH [Concomitant]
     Dosage: 30 UNITS, QD
     Dates: start: 20130101
  14. RUPATADINE [RUPATADINE FUMARATE] [Concomitant]
     Indication: Product used for unknown indication
     Dosage: 10 MILLIGRAM, QD
     Dates: start: 20240520
  15. CEFTRIAXONE SODIUM [Concomitant]
     Active Substance: CEFTRIAXONE SODIUM
     Indication: Product used for unknown indication
     Dosage: 2 GRAM, QD
     Dates: start: 20240508, end: 20240515

REACTIONS (3)
  - Acute myocardial infarction [Recovered/Resolved with Sequelae]
  - Pyelonephritis acute [Recovered/Resolved]
  - Sinus tachycardia [Recovered/Resolved]

NARRATIVE: CASE EVENT DATE: 20170201
